FAERS Safety Report 5586804-0 (Version None)
Quarter: 2008Q1

REPORT INFORMATION
  Report Type: 
  Country: None (occurrence: None)
  Receive Date: 20080110
  Receipt Date: 20080102
  Transmission Date: 20080703
  Serious: Yes (Hospitalization, Other)
  Sender: FDA-Public Use
  Company Number: AR-ABBOTT-08P-007-0432018-00

PATIENT
  Age: 44 Year
  Sex: Female

DRUGS (2)
  1. ADALIMUMAB [Suspect]
     Indication: RHEUMATOID ARTHRITIS
     Dosage: NOT REPORTED
  2. METHOTREXATE [Concomitant]
     Indication: RHEUMATOID ARTHRITIS
     Dosage: NOT REPORTED

REACTIONS (2)
  - CYTOMEGALOVIRUS ANTIBODY POSITIVE [None]
  - HEPATITIS [None]
